FAERS Safety Report 6016907-8 (Version None)
Quarter: 2008Q4

REPORT INFORMATION
  Report Type: 
  Country: None (occurrence: None)
  Receive Date: 20081222
  Receipt Date: 20081212
  Transmission Date: 20090506
  Serious: Yes (Hospitalization)
  Sender: FDA-Public Use
  Company Number: US-ABBOTT-08P-163-0490573-00

PATIENT
  Sex: Female
  Weight: 77.18 kg

DRUGS (4)
  1. HUMIRA [Suspect]
     Indication: CROHN'S DISEASE
     Dates: start: 20070801, end: 20080601
  2. HUMIRA [Suspect]
     Dates: start: 20080912
  3. HUMIRA [Suspect]
     Dates: start: 20081128
  4. PENTASA [Concomitant]
     Indication: CROHN'S DISEASE

REACTIONS (3)
  - CONSTIPATION [None]
  - CROHN'S DISEASE [None]
  - ILEITIS [None]
